FAERS Safety Report 5636322-6 (Version None)
Quarter: 2008Q1

REPORT INFORMATION
  Report Type: 
  Country: None (occurrence: None)
  Receive Date: 20080225
  Receipt Date: 20080225
  Transmission Date: 20080703
  Serious: Yes (Death)
  Sender: FDA-Public Use
  Company Number: None

PATIENT
  Sex: Male

DRUGS (1)
  1. HEPARIN [Suspect]
     Indication: HAEMODIALYSIS
     Dates: start: 20071012, end: 20071012

REACTIONS (4)
  - CARDIAC ARREST [None]
  - ELECTROENCEPHALOGRAM ABNORMAL [None]
  - HYPERSENSITIVITY [None]
  - HYPOTENSION [None]
